FAERS Safety Report 17837470 (Version 1)
Quarter: 2020Q2

REPORT INFORMATION
  Report Type: Spontaneous
  Country: CN (occurrence: CN)
  Receive Date: 20200528
  Receipt Date: 20200528
  Transmission Date: 20200714
  Serious: Yes (Other)
  Sender: FDA-Public Use
  Company Number: CN-FRESENIUS KABI-FK202005183

PATIENT
  Age: 81 Year
  Sex: Male
  Weight: 66 kg

DRUGS (2)
  1. OMEPRAZOLE SODIUM [Concomitant]
     Active Substance: OMEPRAZOLE SODIUM
     Indication: UPPER GASTROINTESTINAL HAEMORRHAGE
     Dosage: 40MG BID
     Route: 041
     Dates: start: 20200516, end: 20200516
  2. LIPOVENOES MCT 20% [Suspect]
     Active Substance: EGG PHOSPHOLIPIDS\GLYCERIN\MEDIUM-CHAIN TRIGLYCERIDES\SOYBEAN OIL
     Indication: DRUG THERAPY
     Dosage: 250 ML QD
     Route: 041
     Dates: start: 20200516, end: 20200516

REACTIONS (4)
  - Chills [Recovered/Resolved]
  - Chest discomfort [Recovered/Resolved]
  - Palpitations [Recovered/Resolved]
  - Pyrexia [Recovered/Resolved]

NARRATIVE: CASE EVENT DATE: 20200516
